FAERS Safety Report 9770898 (Version 1)
Quarter: 2013Q4

REPORT INFORMATION
  Report Type: Spontaneous
  Country: US (occurrence: US)
  Receive Date: 20131218
  Receipt Date: 20131218
  Transmission Date: 20140711
  Serious: No
  Sender: FDA-Public Use
  Company Number: US-BIOGENIDEC-2013BI120078

PATIENT
  Sex: Female

DRUGS (15)
  1. TECFIDERA [Suspect]
     Indication: MULTIPLE SCLEROSIS
     Route: 048
  2. AGGRENOX [Concomitant]
  3. CALCIUM [Concomitant]
  4. CARBAMAZEPINE [Concomitant]
  5. LISINOPRIL [Concomitant]
  6. METFORMIN HCL [Concomitant]
  7. METOPROLOL TARTRATE [Concomitant]
  8. NIACIN [Concomitant]
  9. OMEPRAZOLE [Concomitant]
  10. ONDANSETRON HCL [Concomitant]
  11. PRILOSEC [Concomitant]
  12. SIMVASTATIN [Concomitant]
  13. TRAZODONE HCL [Concomitant]
  14. TYLENOL [Concomitant]
  15. VITAMIN C [Concomitant]

REACTIONS (1)
  - Eye irritation [Unknown]
